FAERS Safety Report 5328614-5 (Version None)
Quarter: 2007Q2

REPORT INFORMATION
  Report Type: 
  Country: None (occurrence: None)
  Receive Date: 20070518
  Receipt Date: 20070510
  Transmission Date: 20071010
  Serious: Yes (Death, Life-Threatening, Hospitalization)
  Sender: FDA-Public Use
  Company Number: US-JNJFOC-20061103465

PATIENT
  Sex: Female
  Weight: 69.4 kg

DRUGS (1)
  1. ORTHO EVRA [Suspect]
     Indication: CONTRACEPTION
     Route: 062

REACTIONS (6)
  - ACUTE RESPIRATORY FAILURE [None]
  - HAEMORRHAGE INTRACRANIAL [None]
  - HEPATIC ENZYME INCREASED [None]
  - HYPERTENSIVE CRISIS [None]
  - PERITONITIS [None]
  - RENAL FAILURE ACUTE [None]
